FAERS Safety Report 7939052-0 (Version None)
Quarter: 2011Q4

REPORT INFORMATION
  Report Type: 
  Country: None (occurrence: None)
  Receive Date: 20111124
  Receipt Date: 20111115
  Transmission Date: 20120403
  Serious: Yes (Death, Hospitalization, Other)
  Sender: FDA-Public Use
  Company Number: MX-PFIZER INC-2011286662

PATIENT
  Age: 69 Year
  Sex: Male

DRUGS (6)
  1. COUMADIN [Concomitant]
     Indication: THROMBOSIS PROPHYLAXIS
     Dosage: 1 MG, EVERY 24 HOURS
     Dates: start: 20020101
  2. LANOXIN [Concomitant]
     Indication: ARRHYTHMIA
     Dosage: 0.250 MG, EVERY 24 HOURS
     Dates: start: 20030101
  3. OROXADIN [Suspect]
     Indication: HYPERTRIGLYCERIDAEMIA
     Dosage: 100 MG, DAILY
     Route: 048
     Dates: start: 20050101
  4. AMIODARONE HCL [Suspect]
     Indication: ARRHYTHMIA
     Dosage: 200 MG, DAILY
     Dates: start: 20030101
  5. FUROSEMIDE [Concomitant]
     Indication: CARDIAC FAILURE CONGESTIVE
     Dosage: 40 MG, EVERY 24 HOURS
     Dates: start: 20030101
  6. PROCORALAN [Concomitant]
     Indication: CARDIAC FAILURE CONGESTIVE
     Dosage: 5 MG EVERY 24 HOURS

REACTIONS (3)
  - VENTRICULAR FIBRILLATION [None]
  - HYPERTRIGLYCERIDAEMIA [None]
  - ARRHYTHMIA [None]
